FAERS Safety Report 19429153 (Version 2)
Quarter: 2021Q2

REPORT INFORMATION
  Report Type: Spontaneous
  Country: NO (occurrence: NO)
  Receive Date: 20210617
  Receipt Date: 20210621
  Transmission Date: 20210717
  Serious: Yes (Death)
  Sender: FDA-Public Use
  Company Number: NO-ROCHE-2847841

PATIENT
  Age: 84 Year
  Sex: Male

DRUGS (11)
  1. SOLU?MEDROL [Concomitant]
     Active Substance: METHYLPREDNISOLONE SODIUM SUCCINATE
     Indication: PREMEDICATION
  2. KLEXANE [Concomitant]
     Active Substance: ENOXAPARIN
     Indication: THROMBOSIS PROPHYLAXIS
  3. OCTAGAM IMMUNE GLOBULIN (HUMAN) [Suspect]
     Active Substance: HUMAN IMMUNOGLOBULIN G
     Indication: MULTIFOCAL MOTOR NEUROPATHY
     Route: 065
     Dates: start: 20210601, end: 20210601
  4. LAXOBERAL [Concomitant]
     Active Substance: SODIUM PICOSULFATE
  5. RITUXIMAB. [Suspect]
     Active Substance: RITUXIMAB
     Indication: MULTIFOCAL MOTOR NEUROPATHY
     Dosage: SINGEL INFUSION.?INFUSION NO. TWO, LAST INFUSION OCT/2020.
     Route: 065
     Dates: start: 20210602, end: 20210602
  6. COMIRNATY [Suspect]
     Active Substance: TOZINAMERAN
     Indication: IMMUNISATION
     Dosage: DOSE IN SERIES NO.1
     Route: 030
     Dates: start: 20210317
  7. COMIRNATY [Suspect]
     Active Substance: TOZINAMERAN
     Indication: IMMUNISATION
     Dosage: DOSE IN SERIES NO. 2
     Route: 030
     Dates: start: 20210428
  8. PARACETAMOL [Concomitant]
     Active Substance: ACETAMINOPHEN
     Indication: PREMEDICATION
     Route: 048
  9. ALBYL?E [Concomitant]
     Active Substance: ASPIRIN\MAGNESIUM OXIDE
  10. CETIRIZINE [Concomitant]
     Active Substance: CETIRIZINE HYDROCHLORIDE
     Indication: PREMEDICATION
  11. PRAVASTATIN SANDOZ [Concomitant]
     Active Substance: PRAVASTATIN

REACTIONS (1)
  - Cardiac arrest [Fatal]

NARRATIVE: CASE EVENT DATE: 20210602
